FAERS Safety Report 11169029 (Version 1)
Quarter: 2015Q2

REPORT INFORMATION
  Report Type: Report from Study
  Country: CL (occurrence: CL)
  Receive Date: 20150605
  Receipt Date: 20150605
  Transmission Date: 20150821
  Serious: Yes (Other)
  Sender: FDA-Public Use
  Company Number: CL-ABBVIE-15P-034-1400334-00

PATIENT
  Age: 25 Year
  Sex: Female

DRUGS (3)
  1. KALETRA [Suspect]
     Active Substance: LOPINAVIR\RITONAVIR
     Indication: HIV INFECTION
     Dosage: TAKING AT CONCEPTION
     Route: 048
     Dates: start: 20140317, end: 20140911
  2. EPIVIR [Concomitant]
     Active Substance: LAMIVUDINE
     Indication: HIV INFECTION
     Dosage: TAKING AT CONCEPTION
     Route: 048
     Dates: start: 20140317, end: 20140911
  3. RETROVIR [Concomitant]
     Active Substance: ZIDOVUDINE
     Indication: HIV INFECTION
     Dosage: TAKING AT CONCEPTION
     Route: 048
     Dates: start: 20140317, end: 20140911

REACTIONS (1)
  - Abortion induced [Unknown]
